FAERS Safety Report 7220442-9 (Version None)
Quarter: 2011Q1

REPORT INFORMATION
  Report Type: 
  Country: None (occurrence: None)
  Receive Date: 20110111
  Receipt Date: 20110103
  Transmission Date: 20110831
  Serious: Yes (Other)
  Sender: FDA-Public Use
  Company Number: PHHY2011US00573

PATIENT
  Sex: Female

DRUGS (15)
  1. FIBER [Concomitant]
     Dosage: UNK
  2. TOPAMAX [Concomitant]
  3. DOXEPIN HCL [Concomitant]
  4. RUFINAMIDE [Concomitant]
  5. CALCIUM [Concomitant]
  6. LAMOTRIGINE [Concomitant]
  7. VITAMIN D [Concomitant]
  8. POTASSIUM [Concomitant]
  9. MAGNESIUM [Concomitant]
  10. KLONOPIN [Concomitant]
  11. PROGESTERONE [Concomitant]
  12. VITAMIN B-12 [Concomitant]
  13. ZINC [Concomitant]
  14. AFINITOR [Suspect]
     Indication: TUBEROUS SCLEROSIS
     Dosage: 5 MG, DAILY
     Route: 048
     Dates: start: 20101227
  15. MULTI-VITAMINS [Concomitant]

REACTIONS (3)
  - ATONIC SEIZURES [None]
  - NAUSEA [None]
  - RASH [None]
